FAERS Safety Report 20871000 (Version 4)
Quarter: 2022Q3

REPORT INFORMATION
  Report Type: Report from Study
  Country: JP (occurrence: JP)
  Receive Date: 20220525
  Receipt Date: 20220715
  Transmission Date: 20221026
  Serious: Yes (Hospitalization, Other)
  Sender: FDA-Public Use
  Company Number: JP-CHUGAI-2021005096AA

PATIENT
  Age: 67 Year
  Sex: Female
  Weight: 52.5 kg

DRUGS (6)
  1. BEVACIZUMAB [Suspect]
     Active Substance: BEVACIZUMAB
     Indication: Hormone receptor positive HER2 negative breast cancer
     Dosage: 525 MILLIGRAM, ONCE/2WEEKS?MOST RECENT DOSE: 26/JAN/2022
     Route: 041
     Dates: start: 20210609
  2. ATEZOLIZUMAB [Suspect]
     Active Substance: ATEZOLIZUMAB
     Indication: Hormone receptor positive HER2 negative breast cancer
     Dosage: 840 MILLIGRAM?MOST RECENT DOSE: 26/JAN/2022
     Route: 041
     Dates: start: 20210609
  3. PACLITAXEL [Suspect]
     Active Substance: PACLITAXEL
     Indication: Hormone receptor positive HER2 negative breast cancer
     Dosage: 133 MILLIGRAM
     Route: 041
     Dates: start: 20210609, end: 20210721
  4. PACLITAXEL [Suspect]
     Active Substance: PACLITAXEL
     Dosage: 96 MILLIGRAM?MOST RECENT DOSE: 26/JAN/2022
     Route: 041
     Dates: start: 20210804
  5. GLYCOSAMINOGLYCANS [Concomitant]
     Active Substance: GLYCOSAMINOGLYCANS
     Indication: Dry skin prophylaxis
     Dosage: UNK
     Route: 061
     Dates: start: 20211117
  6. PETROLATUM [Concomitant]
     Active Substance: PETROLATUM
     Indication: Hormone receptor positive HER2 negative breast cancer
     Dosage: UNK
     Route: 061
     Dates: start: 20210616

REACTIONS (2)
  - Adrenocorticotropic hormone deficiency [Recovering/Resolving]
  - Metastases to bone [Unknown]

NARRATIVE: CASE EVENT DATE: 20220511
